FAERS Safety Report 9766976 (Version 1)
Quarter: 2013Q4

REPORT INFORMATION
  Report Type: Spontaneous
  Country: US (occurrence: US)
  Receive Date: 20131217
  Receipt Date: 20131217
  Transmission Date: 20140711
  Serious: Yes (Life-Threatening, Hospitalization, Other)
  Sender: FDA-Public Use
  Company Number: US-GLAXOSMITHKLINE-A1035724A

PATIENT
  Age: 79 Year
  Sex: Female

DRUGS (11)
  1. VOTRIENT [Suspect]
     Indication: RENAL CELL CARCINOMA
     Dosage: 800MG PER DAY
     Route: 048
     Dates: start: 20130306
  2. HYDROCODONE + ACETAMINOPHEN [Concomitant]
  3. ACYCLOVIR [Concomitant]
  4. GABAPENTIN [Concomitant]
  5. LEVOTHYROXINE [Concomitant]
  6. MAGIC MOUTHWASH [Concomitant]
  7. METOPROLOL SUCCINATE [Concomitant]
  8. NAPROXEN [Concomitant]
  9. SIMVASTATIN [Concomitant]
  10. VENLAFAXINE [Concomitant]
  11. TRAMADOL [Concomitant]

REACTIONS (6)
  - Hepatic enzyme increased [Recovered/Resolved]
  - Alanine aminotransferase increased [Recovered/Resolved]
  - Aspartate aminotransferase increased [Recovered/Resolved]
  - Blood bilirubin increased [Recovered/Resolved]
  - Blood thyroid stimulating hormone increased [Recovered/Resolved]
  - Fatigue [Recovered/Resolved]
